FAERS Safety Report 9546458 (Version 1)
Quarter: 2013Q3

REPORT INFORMATION
  Report Type: Spontaneous
  Country: JP (occurrence: JP)
  Receive Date: 20130923
  Receipt Date: 20130923
  Transmission Date: 20140515
  Serious: Yes (Hospitalization)
  Sender: FDA-Public Use
  Company Number: JP-MYLANLABS-2013S1020694

PATIENT
  Age: 84 Year
  Sex: Female
  Weight: 43.6 kg

DRUGS (7)
  1. RIFAMPICIN [Suspect]
     Indication: DISSEMINATED TUBERCULOSIS
     Dosage: 300MG
     Route: 065
     Dates: start: 201202
  2. PREDNISOLONE [Suspect]
     Dosage: 20MG; THEN REDUCED TO 5MG EVERY 2ND DAY
     Route: 065
  3. PREDNISOLONE [Suspect]
     Dosage: 5MG EVERY 2ND DAY
     Route: 065
  4. ISONIAZID [Concomitant]
     Indication: DISSEMINATED TUBERCULOSIS
     Dosage: 200MG
     Route: 065
     Dates: start: 201202
  5. ETHAMBUTOL [Concomitant]
     Indication: DISSEMINATED TUBERCULOSIS
     Dosage: 500MG
     Route: 065
     Dates: start: 201202
  6. FAMOTIDINE [Concomitant]
     Route: 065
  7. CEFMETAZOLE [Concomitant]
     Indication: URINARY TRACT INFECTION
     Route: 065

REACTIONS (1)
  - Pneumonitis [Recovered/Resolved]
